FAERS Safety Report 9288531 (Version 3)
Quarter: 2013Q3

REPORT INFORMATION
  Report Type: Spontaneous
  Country: US (occurrence: US)
  Receive Date: 20130514
  Receipt Date: 20130702
  Transmission Date: 20140515
  Serious: Yes (Other)
  Sender: FDA-Public Use
  Company Number: US-PERRIGO-13US005046

PATIENT
  Age: 69 Year
  Sex: Female

DRUGS (2)
  1. ACETAMINOPHEN-ASPIRIN-CAFFEINE 1T1 [Suspect]
     Indication: MIGRAINE WITH AURA
     Dosage: 1 CAPLET, SINGLE
     Route: 048
     Dates: start: 20130427, end: 20130427
  2. PREDNISONE [Concomitant]
     Indication: PRODUCT USED FOR UNKNOWN INDICATION
     Dosage: UNK, UNK
     Route: 048
     Dates: start: 1993

REACTIONS (4)
  - Vitreous detachment [Not Recovered/Not Resolved]
  - Retinal detachment [Unknown]
  - Vitreous floaters [Not Recovered/Not Resolved]
  - Underdose [Recovered/Resolved]
